FAERS Safety Report 20508910 (Version 1)
Quarter: 2022Q1

REPORT INFORMATION
  Report Type: Spontaneous
  Country: GB (occurrence: GB)
  Receive Date: 20220223
  Receipt Date: 20220223
  Transmission Date: 20220423
  Serious: Yes (Hospitalization, Other)
  Sender: FDA-Public Use
  Company Number: None

PATIENT
  Age: 71 Year
  Sex: Female

DRUGS (6)
  1. SERTRALINE [Suspect]
     Active Substance: SERTRALINE HYDROCHLORIDE
     Indication: Mixed anxiety and depressive disorder
     Dosage: 50 MILLIGRAM, QD
     Dates: start: 202107
  2. SERTRALINE [Suspect]
     Active Substance: SERTRALINE HYDROCHLORIDE
     Indication: Depressed mood
     Dosage: 100 MILLIGRAM, QD
     Dates: start: 20211223
  3. CALCIUM CARBONATE\CHOLECALCIFEROL [Concomitant]
     Active Substance: CALCIUM CARBONATE\CHOLECALCIFEROL
     Indication: Osteopenia
     Dosage: 2 DOSAGE FORM (PREFERABLY ONE TABLET MORNING AND EVENING 56 TABLET - PT TAKES PRN)
     Dates: start: 20211203
  4. COCODAMOL [Concomitant]
     Active Substance: ACETAMINOPHEN\CODEINE PHOSPHATE
     Indication: Product used for unknown indication
     Dosage: ONE OR TWO TO BE TAKEN FOUR TIMES A DAY WHEN REQUIRED
     Dates: start: 20211203
  5. DOCUSATE [Concomitant]
     Active Substance: DOCUSATE
     Indication: Product used for unknown indication
     Dosage: 1-2 TABLETS ONCE OR TWICE A DAY AS NEEDED 50 CAPSULE
     Dates: start: 20211018
  6. DOCUSATE [Concomitant]
     Active Substance: DOCUSATE
     Dosage: 1-2 TABLETS ONCE OR TWICE A DAY AS NEEDED - PT TAKES PRN
     Dates: start: 20211206

REACTIONS (6)
  - Dementia [Unknown]
  - Cellulitis [Unknown]
  - Depersonalisation/derealisation disorder [Unknown]
  - Hallucination [Unknown]
  - Delirium [Unknown]
  - Confusional state [Unknown]
